FAERS Safety Report 5871771-2 (Version None)
Quarter: 2008Q3

REPORT INFORMATION
  Report Type: 
  Country: None (occurrence: None)
  Receive Date: 20080902
  Receipt Date: 20060117
  Transmission Date: 20090109
  Serious: Yes (Death, Other)
  Sender: FDA-Public Use
  Company Number: 2008AL009341

PATIENT
  Sex: Male

DRUGS (2)
  1. VERAPAMIL HCL [Suspect]
     Dosage: 120 MG;QD; PO
     Route: 048
  2. DONEPEZIL HCL [Concomitant]

REACTIONS (1)
  - ATRIOVENTRICULAR BLOCK [None]
